FAERS Safety Report 21073898 (Version 6)
Quarter: 2022Q3

REPORT INFORMATION
  Report Type: Spontaneous
  Country: LT (occurrence: LT)
  Receive Date: 20220713
  Receipt Date: 20220928
  Transmission Date: 20221027
  Serious: Yes (Hospitalization, Other)
  Sender: FDA-Public Use
  Company Number: LT-ROCHE-3126410

PATIENT
  Age: 61 Year
  Sex: Female

DRUGS (49)
  1. MIRTAZAPINE [Suspect]
     Active Substance: MIRTAZAPINE
     Indication: Psychotic disorder
     Dosage: 30 MILLIGRAM, QD (30 MG PER DAY)
  2. MIRTAZAPINE [Suspect]
     Active Substance: MIRTAZAPINE
     Indication: Agitation
     Dosage: 15 MG, QD (15 MG PER DAY)
  3. MIRTAZAPINE [Suspect]
     Active Substance: MIRTAZAPINE
     Indication: Sleep disorder
     Dosage: 30 MILLIGRAM, QD (30 MG PER DAY)
  4. MIRTAZAPINE [Suspect]
     Active Substance: MIRTAZAPINE
     Indication: Anxiety
  5. BENSERAZIDE\LEVODOPA [Suspect]
     Active Substance: BENSERAZIDE\LEVODOPA
     Indication: Parkinson^s disease
     Dosage: 100 MILLIGRAM, QD (25 MG, 4X PER DAY)
  6. BENSERAZIDE\LEVODOPA [Suspect]
     Active Substance: BENSERAZIDE\LEVODOPA
     Indication: Product used for unknown indication
     Dosage: 25 MILLIGRAM, 5XD
  7. BENSERAZIDE\LEVODOPA [Suspect]
     Active Substance: BENSERAZIDE\LEVODOPA
     Dosage: LEVODOPA AND BENSERAZIDE (100 MG AND 25 MG FIVE TIMES A DAY)
  8. BENSERAZIDE\LEVODOPA [Suspect]
     Active Substance: BENSERAZIDE\LEVODOPA
     Dosage: INCREASED DOSE
  9. BENSERAZIDE\LEVODOPA [Suspect]
     Active Substance: BENSERAZIDE\LEVODOPA
     Dosage: UNK (LEVODOPA AND BENSERAZIDE (100 MG AND 25 MG FIVE TIMES A DAY)) (0.2 DAY)
  10. BROMAZEPAM [Suspect]
     Active Substance: BROMAZEPAM
     Indication: Psychotic disorder
     Dosage: 6 MG QD, UPTO 6MG/DAY
  11. BROMAZEPAM [Suspect]
     Active Substance: BROMAZEPAM
     Indication: Sleep disorder
     Dosage: UPTO 6 MG/DAY
  12. BROMAZEPAM [Suspect]
     Active Substance: BROMAZEPAM
     Indication: Agitation
  13. BROMAZEPAM [Suspect]
     Active Substance: BROMAZEPAM
     Indication: Anxiety
  14. ROPINIROLE [Suspect]
     Active Substance: ROPINIROLE
     Indication: Parkinson^s disease
     Dosage: 8 MILLIGRAM, QD (8 MG, PER DAY)
  15. ROPINIROLE [Suspect]
     Active Substance: ROPINIROLE
     Indication: Psychotic disorder
     Dosage: 20 MILLIGRAM, QD GRADUALLY INCREASING THE DOSE OF ROPINIROLE ON HER OWN (UP TO 20 MG/DAY)
  16. ROPINIROLE [Suspect]
     Active Substance: ROPINIROLE
     Dosage: 20 MILLIGRAM, QD (20 MG, PER DAY )
  17. ROPINIROLE [Suspect]
     Active Substance: ROPINIROLE
     Dosage: 12 MILLIGRAM, QD (12 MG, PER DAY)
  18. ROPINIROLE [Suspect]
     Active Substance: ROPINIROLE
     Dosage: 8 MILLIGRAM, QD (8 MG, PER DAY)
  19. ROPINIROLE [Suspect]
     Active Substance: ROPINIROLE
     Dosage: GRADUALLY INCREASING THE DOSE OF ROPINIROLE ON HER OWN (UP TO 20 MG/DAY)
  20. CLOZAPINE [Suspect]
     Active Substance: CLOZAPINE
     Indication: Parkinson^s disease psychosis
     Dosage: 25 MILLIGRAM, QD (25 MG, PER DAY, WITH A GRADUAL DOSE TITRATION TO 150 MG/DAY)
  21. CLOZAPINE [Suspect]
     Active Substance: CLOZAPINE
     Indication: Hallucination, visual
     Dosage: 150 MILLIGRAM, QD (WITH A GRADUAL DOSE TITRATION TO 150 MG/DAY)
  22. CLOZAPINE [Suspect]
     Active Substance: CLOZAPINE
     Indication: Behaviour disorder
     Dosage: 150 MILLIGRAM, QD (150 MG PER DAY)
  23. CLOZAPINE [Suspect]
     Active Substance: CLOZAPINE
     Indication: Neutropenia
     Dosage: WITH A GRADUAL DOSE TITRATION TO 150 MG/DAY
  24. CLOZAPINE [Suspect]
     Active Substance: CLOZAPINE
     Dosage: 150 MILLIGRAM, QD
  25. TRIHEXYPHENIDYL [Suspect]
     Active Substance: TRIHEXYPHENIDYL
     Indication: Product used for unknown indication
     Dosage: 4 MILLIGRAM, QD (4 MG, PER DAY) (UPTO 4 MG/DAY)
  26. QUETIAPINE [Suspect]
     Active Substance: QUETIAPINE
     Indication: Depression
     Dosage: UNK, QD (UPTO 25 MG A DAY)
  27. QUETIAPINE [Suspect]
     Active Substance: QUETIAPINE
     Dosage: 450 MILLIGRAM, QD (450 MG, PER DAY)
  28. QUETIAPINE [Suspect]
     Active Substance: QUETIAPINE
     Dosage: 25 MILLIGRAM, HS (25 MG AT NIGHT)
  29. QUETIAPINE [Suspect]
     Active Substance: QUETIAPINE
     Dosage: 450 MILLIGRAM, QD
  30. DIAZEPAM [Suspect]
     Active Substance: DIAZEPAM
     Indication: Anxiety
     Dosage: 10 MILLIGRAM, QD (10 MG, PER DAY) (UPTO 10 MG/DAY)
  31. DIAZEPAM [Suspect]
     Active Substance: DIAZEPAM
     Indication: Tension
  32. SERTRALINE [Suspect]
     Active Substance: SERTRALINE HYDROCHLORIDE
     Indication: Anxiety
     Dosage: 150 MILLIGRAM, QD (150 MG, PER DAY)
  33. SERTRALINE [Suspect]
     Active Substance: SERTRALINE HYDROCHLORIDE
     Indication: Depression
     Dosage: 125 MILLIGRAM, AM (125 MG IN MORNING)
  34. LEVODOPA [Suspect]
     Active Substance: LEVODOPA
     Indication: Parkinson^s disease
     Dosage: INCREASED DOSE
  35. LEVODOPA [Suspect]
     Active Substance: LEVODOPA
     Indication: Psychotic disorder
     Dosage: 100 MILLIGRAM (LEVODOPA AND BENSERAZIDE (100 MG AND 25 MG FIVE TIMES A DAY)
  36. LEVODOPA [Suspect]
     Active Substance: LEVODOPA
     Dosage: 100 MILLIGRAM, QD
  37. LEVODOPA [Suspect]
     Active Substance: LEVODOPA
     Dosage: 100 MILLIGRAM
  38. OLANZAPINE [Interacting]
     Active Substance: OLANZAPINE
     Indication: Product used for unknown indication
     Dosage: 2.5 MILLIGRAM, QD
  39. OLANZAPINE [Interacting]
     Active Substance: OLANZAPINE
     Dosage: 15 MILLIGRAM, QD (15 MG, PER DAY )
  40. OLANZAPINE [Interacting]
     Active Substance: OLANZAPINE
     Dosage: 10 MILLIGRAM, QD (10 MG, PER DAY )
  41. BENSERAZIDE [Suspect]
     Active Substance: BENSERAZIDE
     Indication: Product used for unknown indication
     Dosage: INCREASED DOSE
  42. BENSERAZIDE [Suspect]
     Active Substance: BENSERAZIDE
     Dosage: 100 MILLIGRAM, QD (25 MG, 4X PER DAY)
  43. BENSERAZIDE [Suspect]
     Active Substance: BENSERAZIDE
     Dosage: 25 MILLIGRAM, 5XD
     Route: 048
  44. BENSERAZIDE [Suspect]
     Active Substance: BENSERAZIDE
     Dosage: UNK, LEVODOPA AND BENSERAZIDE (100 MG AND 25 MG FIVE TIMES A DAY)
  45. BENSERAZIDE [Suspect]
     Active Substance: BENSERAZIDE
     Dosage: 125 MILLIGRAM, QD
  46. QUETIAPINE [Concomitant]
     Active Substance: QUETIAPINE
     Indication: Product used for unknown indication
     Dosage: 450 MILLIGRAM, QD
  47. DIAZEPAM [Concomitant]
     Active Substance: DIAZEPAM
     Indication: Anxiety
     Dosage: 10 MILLIGRAM, QD (UPTO 10 MG/DAY)
  48. DIAZEPAM [Concomitant]
     Active Substance: DIAZEPAM
     Indication: Tension
  49. TRIHEXYPHENIDYL [Concomitant]
     Active Substance: TRIHEXYPHENIDYL
     Indication: Product used for unknown indication
     Dosage: UPTO 4 MG/DAY

REACTIONS (10)
  - Neutropenia [Unknown]
  - Condition aggravated [Recovering/Resolving]
  - Intentional product misuse [Unknown]
  - Drug ineffective [Recovering/Resolving]
  - On and off phenomenon [Not Recovered/Not Resolved]
  - Speech disorder [Unknown]
  - Labelled drug-disease interaction issue [Unknown]
  - Movement disorder [Unknown]
  - Muscle spasms [Unknown]
  - Hypotension [Unknown]
